FAERS Safety Report 4749592-3 (Version None)
Quarter: 2005Q3

REPORT INFORMATION
  Report Type: 
  Country: None (occurrence: None)
  Receive Date: 20050822
  Receipt Date: 20050812
  Transmission Date: 20060218
  Serious: Yes (Hospitalization)
  Sender: FDA-Public Use
  Company Number: FR-GLAXOSMITHKLINE-B0391272A

PATIENT
  Age: 76 Year
  Sex: Male

DRUGS (1)
  1. ZELITREX [Suspect]
     Indication: HERPES ZOSTER
     Dosage: 500MG TWICE PER DAY
     Route: 048
     Dates: start: 20050705, end: 20050708

REACTIONS (5)
  - CONFUSIONAL STATE [None]
  - DIFFICULTY IN WALKING [None]
  - EATING DISORDER [None]
  - GENERAL PHYSICAL HEALTH DETERIORATION [None]
  - SOMNOLENCE [None]
